FAERS Safety Report 15052630 (Version 1)
Quarter: 2018Q2

REPORT INFORMATION
  Report Type: Spontaneous
  Country: US (occurrence: US)
  Receive Date: 20180602
  Receipt Date: 20180602
  Transmission Date: 20180711
  Serious: Yes (Life-Threatening, Disabling)
  Sender: FDA-Public Use
  Company Number: None

PATIENT
  Age: 41 Year
  Sex: Female
  Weight: 81.65 kg

DRUGS (6)
  1. VITAMIN C [Concomitant]
     Active Substance: ASCORBIC ACID
  2. DIAMOX SEQUELS [Concomitant]
     Active Substance: ACETAZOLAMIDE
  3. IRON [Concomitant]
     Active Substance: IRON
  4. TRAMADOL. [Concomitant]
     Active Substance: TRAMADOL
  5. MIRENA [Suspect]
     Active Substance: LEVONORGESTREL
     Dates: start: 20160401, end: 20180416
  6. VITAMIN D [Concomitant]
     Active Substance: CHOLECALCIFEROL

REACTIONS (7)
  - Vision blurred [None]
  - Idiopathic intracranial hypertension [None]
  - Fatigue [None]
  - Headache [None]
  - Vertigo [None]
  - Intraocular pressure increased [None]
  - Dizziness [None]

NARRATIVE: CASE EVENT DATE: 20180405
